FAERS Safety Report 20612275 (Version 1)
Quarter: 2022Q1

REPORT INFORMATION
  Report Type: Spontaneous
  Country: US (occurrence: None)
  Receive Date: 20220318
  Receipt Date: 20220318
  Transmission Date: 20220423
  Serious: Yes (Hospitalization)
  Sender: FDA-Public Use
  Company Number: None

PATIENT
  Age: 70 Year
  Sex: Female
  Weight: 84 kg

DRUGS (1)
  1. FERUMOXYTOL [Suspect]
     Active Substance: FERUMOXYTOL
     Indication: Anaemia
     Dosage: OTHER FREQUENCY : ONCE;?
     Route: 042
     Dates: start: 20220315, end: 20220315

REACTIONS (7)
  - Cough [None]
  - Chest discomfort [None]
  - Dizziness [None]
  - Dizziness [None]
  - Hypertension [None]
  - Malaise [None]
  - Infusion related reaction [None]

NARRATIVE: CASE EVENT DATE: 20220315
